FAERS Safety Report 10881327 (Version 2)
Quarter: 2015Q1

REPORT INFORMATION
  Report Type: Spontaneous
  Country: US (occurrence: US)
  Receive Date: 20150303
  Receipt Date: 20150306
  Transmission Date: 20150721
  Serious: Yes (Other)
  Sender: FDA-Public Use
  Company Number: US-DRREDDYS-USA/USA/15/0046388

PATIENT
  Sex: Female

DRUGS (1)
  1. ZENATANE [Suspect]
     Active Substance: ISOTRETINOIN
     Indication: PRODUCT USED FOR UNKNOWN INDICATION
     Route: 065
     Dates: start: 20150203

REACTIONS (2)
  - Agitation [Unknown]
  - Affective disorder [Unknown]
